FAERS Safety Report 18678664 (Version 1)
Quarter: 2020Q4

REPORT INFORMATION
  Report Type: Report from Study
  Country: US (occurrence: US)
  Receive Date: 20201229
  Receipt Date: 20201229
  Transmission Date: 20210114
  Serious: No
  Sender: FDA-Public Use
  Company Number: US-CLOVIS ONCOLOGY-CLO-2020-001064

PATIENT
  Sex: Female

DRUGS (4)
  1. RUBRACA [Suspect]
     Active Substance: RUCAPARIB CAMSYLATE
     Dosage: 600 MG, BID
     Route: 048
     Dates: start: 20200603, end: 202011
  2. RUBRACA [Suspect]
     Active Substance: RUCAPARIB CAMSYLATE
     Dosage: 600 MG, BID
     Route: 048
     Dates: start: 20200603, end: 202007
  3. RUBRACA [Suspect]
     Active Substance: RUCAPARIB CAMSYLATE
     Indication: PANCREATIC CARCINOMA
     Dosage: 600 MG, BID
     Route: 048
     Dates: end: 202005
  4. RUBRACA [Suspect]
     Active Substance: RUCAPARIB CAMSYLATE
     Dosage: 600 MG IN AM, 300 MG IN PM
     Dates: start: 202005

REACTIONS (12)
  - Product use in unapproved indication [Unknown]
  - Vomiting [Not Recovered/Not Resolved]
  - Hepatic function abnormal [Unknown]
  - Tremor [Unknown]
  - Constipation [Unknown]
  - Headache [Unknown]
  - Product dose omission issue [Unknown]
  - Drug intolerance [Not Recovered/Not Resolved]
  - Nausea [Unknown]
  - Asthenia [Not Recovered/Not Resolved]
  - Decreased appetite [Unknown]
  - Fatigue [Not Recovered/Not Resolved]

NARRATIVE: CASE EVENT DATE: 2020
